FAERS Safety Report 22637922 (Version 1)
Quarter: 2023Q2

REPORT INFORMATION
  Report Type: Spontaneous
  Country: CA (occurrence: CA)
  Receive Date: 20230626
  Receipt Date: 20230626
  Transmission Date: 20230721
  Serious: Yes (Other)
  Sender: FDA-Public Use
  Company Number: CA-CELLTRION INC.-2022CA004031

PATIENT

DRUGS (13)
  1. INFLECTRA [Suspect]
     Active Substance: INFLIXIMAB-DYYB
     Indication: Crohn^s disease
     Dosage: 5 MG/KG, (500 MG) Q 0, 2, 6 THEN EVERY 4 WEEKS
     Route: 042
     Dates: start: 20220309, end: 20220309
  2. INFLECTRA [Suspect]
     Active Substance: INFLIXIMAB-DYYB
     Dosage: 400 MG, (PATIENT IS SUPPOSED TO RECEIVE 5 MG/KG)
     Route: 042
     Dates: start: 20220323
  3. INFLECTRA [Suspect]
     Active Substance: INFLIXIMAB-DYYB
     Dosage: 400 MG, (PATIENT IS SUPPOSED TO RECEIVE 5 MG/KG)
     Route: 042
     Dates: start: 20220420
  4. INFLECTRA [Suspect]
     Active Substance: INFLIXIMAB-DYYB
     Dosage: 400 MG, (PATIENT IS SUPPOSED TO RECEIVE 5 MG/KG)
     Route: 042
     Dates: start: 20220519
  5. INFLECTRA [Suspect]
     Active Substance: INFLIXIMAB-DYYB
     Dosage: 400 MG, (5 MG/KG) EVERY 4 WEEKS
     Route: 042
     Dates: start: 20220812
  6. INFLECTRA [Suspect]
     Active Substance: INFLIXIMAB-DYYB
     Dosage: 5 MG/KG, 0, 2, 6 THEN EVERY 4 WEEKS
     Route: 042
     Dates: start: 20220909
  7. INFLECTRA [Suspect]
     Active Substance: INFLIXIMAB-DYYB
     Dosage: 5 MG/KG, 0, 2, 6 THEN EVERY 4 WEEKS
     Route: 042
     Dates: start: 20221007
  8. INFLECTRA [Suspect]
     Active Substance: INFLIXIMAB-DYYB
     Dosage: 5 MG/KG, 0, 2, 6 THEN EVERY 4 WEEKS
     Route: 042
     Dates: start: 20221230
  9. INFLECTRA [Suspect]
     Active Substance: INFLIXIMAB-DYYB
     Dosage: 500 MG, 0, 2, 6 THEN EVERY 4 WEEKS
     Route: 042
     Dates: start: 20230127
  10. INFLECTRA [Suspect]
     Active Substance: INFLIXIMAB-DYYB
     Dosage: 5 MG/KG, (500 MG) Q 0, 2, 6 THEN EVERY 4 WEEKS
     Route: 042
     Dates: start: 20230224
  11. INFLECTRA [Suspect]
     Active Substance: INFLIXIMAB-DYYB
     Dosage: 500 MG, EVERY 4 WEEKS
     Route: 042
     Dates: start: 20230324
  12. INFLECTRA [Suspect]
     Active Substance: INFLIXIMAB-DYYB
     Dosage: 500 MG, EVERY 4 WEEKS (Q 4 WEEKS)
     Route: 042
     Dates: start: 20230422
  13. INFLECTRA [Suspect]
     Active Substance: INFLIXIMAB-DYYB
     Dosage: UNK
     Route: 042
     Dates: start: 20230615

REACTIONS (9)
  - Colostomy [Unknown]
  - Anal fistula [Not Recovered/Not Resolved]
  - Condition aggravated [Recovering/Resolving]
  - Arthralgia [Not Recovered/Not Resolved]
  - Fistula discharge [Unknown]
  - Herpes zoster [Recovered/Resolved]
  - Swelling [Not Recovered/Not Resolved]
  - Blood pressure increased [Not Recovered/Not Resolved]
  - Off label use [Unknown]

NARRATIVE: CASE EVENT DATE: 20220420
